FAERS Safety Report 8451873-7 (Version None)
Quarter: 2012Q2

REPORT INFORMATION
  Report Type: 
  Country: None (occurrence: None)
  Receive Date: 20120620
  Receipt Date: 20120321
  Transmission Date: 20120825
  Serious: No
  Sender: FDA-Public Use
  Company Number: US-VERTEX PHARMACEUTICALS INC.-AE-2012-004163

PATIENT
  Sex: Male
  Weight: 90.8 kg

DRUGS (3)
  1. PEGASYS [Concomitant]
     Indication: HEPATITIS C
     Route: 058
     Dates: start: 20120213
  2. INCIVEK [Suspect]
     Indication: HEPATITIS C
     Route: 048
     Dates: start: 20120213
  3. RIBAVIRIN [Concomitant]
     Indication: HEPATITIS C
     Dates: start: 20120213

REACTIONS (9)
  - DEPRESSION [None]
  - SEASONAL ALLERGY [None]
  - MOOD SWINGS [None]
  - RASH PRURITIC [None]
  - ANORECTAL DISCOMFORT [None]
  - ANAL PRURITUS [None]
  - SNEEZING [None]
  - HAEMORRHOIDS [None]
  - RECTAL HAEMORRHAGE [None]
